FAERS Safety Report 12457427 (Version 1)
Quarter: 2016Q2

REPORT INFORMATION
  Report Type: Spontaneous
  Country: PT (occurrence: PT)
  Receive Date: 20160610
  Receipt Date: 20160610
  Transmission Date: 20160815
  Serious: Yes (Hospitalization, Other)
  Sender: FDA-Public Use
  Company Number: PT-GILEAD-2016-0217279

PATIENT
  Age: 74 Year
  Sex: Female

DRUGS (5)
  1. VARFINE [Concomitant]
     Active Substance: WARFARIN SODIUM
     Dosage: 0.75 DF, UNK
     Route: 065
     Dates: end: 201605
  2. HARVONI [Suspect]
     Active Substance: LEDIPASVIR\SOFOSBUVIR
     Indication: HEPATITIS C
     Dosage: UNK
     Route: 065
     Dates: start: 201605, end: 20160523
  3. HARVONI [Suspect]
     Active Substance: LEDIPASVIR\SOFOSBUVIR
     Dosage: UNK
     Route: 065
     Dates: start: 20160525
  4. VARFINE [Concomitant]
     Active Substance: WARFARIN SODIUM
     Dosage: 0.25 UNK, UNK
     Route: 048
     Dates: start: 20160527
  5. VARFINE [Concomitant]
     Active Substance: WARFARIN SODIUM
     Indication: ATRIAL FIBRILLATION
     Dosage: 1 DF, UNK
     Route: 048
     Dates: end: 201605

REACTIONS (2)
  - Drug dose omission [Recovered/Resolved]
  - Gastrointestinal haemorrhage [Recovered/Resolved]

NARRATIVE: CASE EVENT DATE: 20160524
